FAERS Safety Report 8208325-9 (Version None)
Quarter: 2012Q1

REPORT INFORMATION
  Report Type: 
  Country: None (occurrence: None)
  Receive Date: 20120314
  Receipt Date: 20120310
  Transmission Date: 20120608
  Serious: Yes (Death, Hospitalization)
  Sender: FDA-Public Use
  Company Number: PHHY2012PA021605

PATIENT
  Age: 84 Year
  Sex: Female

DRUGS (1)
  1. EXFORGE [Suspect]
     Indication: HYPERTENSION
     Dosage: 1 DF, BID (5 MG AMLO, 160 MG VALS)
     Route: 048

REACTIONS (4)
  - HEAD INJURY [None]
  - CEREBRAL HAEMORRHAGE [None]
  - FALL [None]
  - DEATH [None]
